FAERS Safety Report 9778303 (Version 1)
Quarter: 2013Q4

REPORT INFORMATION
  Report Type: Spontaneous
  Country: US (occurrence: US)
  Receive Date: 20131223
  Receipt Date: 20131223
  Transmission Date: 20140711
  Serious: No
  Sender: FDA-Public Use
  Company Number: US-BAYER-2013-155612

PATIENT
  Age: 40 Year
  Sex: Female

DRUGS (1)
  1. GADAVIST [Suspect]
     Indication: NUCLEAR MAGNETIC RESONANCE IMAGING
     Dosage: 5 ML, ONCE
     Dates: start: 20131218, end: 20131218

REACTIONS (1)
  - Urticaria [Recovering/Resolving]
